FAERS Safety Report 5326610-5 (Version None)
Quarter: 2007Q2

REPORT INFORMATION
  Report Type: 
  Country: None (occurrence: None)
  Receive Date: 20070516
  Receipt Date: 20070507
  Transmission Date: 20071010
  Serious: Yes (Life-Threatening, Hospitalization)
  Sender: FDA-Public Use
  Company Number: US-SANOFI-SYNTHELABO-A03200701806

PATIENT
  Sex: Male
  Weight: 82.54 kg

DRUGS (13)
  1. PLAVIX [Suspect]
     Indication: STENT PLACEMENT
     Route: 048
     Dates: start: 20041101
  2. COLACE [Concomitant]
     Route: 048
     Dates: start: 20050101
  3. LACTULOSE [Concomitant]
     Route: 048
     Dates: start: 20050101
  4. DULCOLAX [Concomitant]
     Dosage: UNK
     Route: 054
     Dates: start: 20050101
  5. VICODIN [Concomitant]
     Route: 048
     Dates: start: 20060201
  6. GABAPENTIN [Concomitant]
     Route: 048
  7. PRILOSEC [Concomitant]
     Route: 048
  8. ZETIA [Concomitant]
     Route: 048
  9. LIPITOR [Concomitant]
     Route: 048
  10. ASPIRIN [Concomitant]
     Route: 048
  11. ASPIRIN [Concomitant]
     Route: 048
  12. IBUPROFEN [Concomitant]
     Route: 048
  13. CORGARD [Concomitant]
     Route: 048

REACTIONS (2)
  - MYOCARDIAL INFARCTION [None]
  - POST PROCEDURAL HAEMORRHAGE [None]
